FAERS Safety Report 12340132 (Version 2)
Quarter: 2016Q2

REPORT INFORMATION
  Report Type: Spontaneous
  Country: CH (occurrence: CH)
  Receive Date: 20160506
  Receipt Date: 20160506
  Transmission Date: 20160815
  Serious: Yes (Life-Threatening, Other)
  Sender: FDA-Public Use
  Company Number: CH-009507513-1604CHE016846

PATIENT
  Age: 85 Year
  Sex: Female

DRUGS (8)
  1. TOREM [Concomitant]
     Active Substance: TORSEMIDE
     Dosage: 10 MG, QD
  2. COSAAR 100 [Suspect]
     Active Substance: LOSARTAN POTASSIUM
     Dosage: 100 MG, QD
     Route: 048
  3. ASPIRIN CARDIO [Concomitant]
     Active Substance: ASPIRIN
     Dosage: 100 MG, QD
  4. SORTIS [Concomitant]
     Active Substance: ATORVASTATIN
     Dosage: 40 MG, QD
  5. NOVOMIX [Concomitant]
     Active Substance: INSULIN ASPART
     Dosage: 20 IU, QD
  6. ROCEPHIN [Suspect]
     Active Substance: CEFTRIAXONE SODIUM
     Indication: URINARY TRACT INFECTION
     Dosage: 2 G, QD; FORMULATION: AMPULE WITH SOLID CONTENT
     Route: 042
     Dates: start: 20160113, end: 20160114
  7. CIPROFLOXACIN. [Suspect]
     Active Substance: CIPROFLOXACIN
     Indication: URINARY TRACT INFECTION
     Dosage: 400 MG, BID
     Route: 042
     Dates: start: 20160114, end: 201601
  8. TRADJENTA [Concomitant]
     Active Substance: LINAGLIPTIN
     Dosage: 5 MG, QD

REACTIONS (3)
  - Renal failure [None]
  - Angioedema [Recovered/Resolved]
  - Epilepsy [Recovered/Resolved]

NARRATIVE: CASE EVENT DATE: 20160114
